FAERS Safety Report 9804512 (Version 4)
Quarter: 2014Q2

REPORT INFORMATION
  Report Type: Report from Study
  Country: FR (occurrence: FR)
  Receive Date: 20140108
  Receipt Date: 20140411
  Transmission Date: 20141212
  Serious: Yes (Hospitalization)
  Sender: FDA-Public Use
  Company Number: FR-GLAXOSMITHKLINE-Z0021905A

PATIENT
  Age: 77 Year
  Sex: Female
  Weight: 69 kg

DRUGS (7)
  1. DABRAFENIB [Suspect]
     Indication: MALIGNANT MELANOMA
     Dosage: 150MG TWICE PER DAY
     Route: 048
     Dates: start: 20131115
  2. TRAMETINIB [Suspect]
     Indication: MALIGNANT MELANOMA
     Dosage: 2MG PER DAY
     Route: 048
     Dates: start: 20131115
  3. LOSARTAN [Concomitant]
     Indication: HYPERTENSION
     Dosage: 40MG PER DAY
     Route: 048
     Dates: start: 20131212
  4. THIAZIDE [Concomitant]
     Indication: HYPERTENSION
     Dosage: 12.5MG PER DAY
     Route: 048
     Dates: start: 20131212
  5. FORLAX [Concomitant]
     Indication: CONSTIPATION
     Dosage: 10G TWICE PER DAY
     Route: 048
     Dates: start: 20131114
  6. DOLIPRANE [Concomitant]
     Indication: BACK PAIN
     Dosage: 1G AS REQUIRED
     Route: 048
     Dates: start: 20131114
  7. CODEINE PARACETAMOL [Concomitant]
     Indication: BACK PAIN
     Route: 048
     Dates: start: 20131212

REACTIONS (1)
  - Dizziness [Recovered/Resolved]
